FAERS Safety Report 10463495 (Version 1)
Quarter: 2014Q3

REPORT INFORMATION
  Report Type: Spontaneous
  Country: FR (occurrence: FR)
  Receive Date: 20140919
  Receipt Date: 20140919
  Transmission Date: 20150326
  Serious: Yes (Hospitalization)
  Sender: FDA-Public Use
  Company Number: FR-TEVA-508776ISR

PATIENT
  Age: 46 Year
  Sex: Female

DRUGS (1)
  1. LEELOO 0.1MG / 0.02MG [Suspect]
     Active Substance: ETHINYL ESTRADIOL\LEVONORGESTREL
     Indication: ORAL CONTRACEPTION
     Route: 048
     Dates: end: 20120508

REACTIONS (3)
  - Headache [Recovered/Resolved]
  - Cerebrovascular accident [Recovered/Resolved with Sequelae]
  - Sensorimotor disorder [Recovered/Resolved with Sequelae]

NARRATIVE: CASE EVENT DATE: 20120508
